FAERS Safety Report 7167359-6 (Version None)
Quarter: 2010Q4

REPORT INFORMATION
  Report Type: 
  Country: None (occurrence: None)
  Receive Date: 20101216
  Receipt Date: 20101206
  Transmission Date: 20110411
  Serious: Yes (Other)
  Sender: FDA-Public Use
  Company Number: US-JNJFOC-20101203265

PATIENT
  Sex: Female
  Weight: 49.44 kg

DRUGS (3)
  1. ELMIRON [Suspect]
     Indication: BLADDER DISORDER
     Route: 048
  2. NORVASC [Concomitant]
     Indication: HYPERTENSION
     Route: 048
  3. ACIPHEX [Concomitant]
     Indication: PANCREATIC OPERATION
     Route: 048

REACTIONS (3)
  - ADVERSE EVENT [None]
  - BLOOD URINE PRESENT [None]
  - TREATMENT NONCOMPLIANCE [None]
